FAERS Safety Report 26065003 (Version 1)
Quarter: 2025Q4

REPORT INFORMATION
  Report Type: Report from Study
  Country: US (occurrence: US)
  Receive Date: 20251119
  Receipt Date: 20251119
  Transmission Date: 20260118
  Serious: Yes (Other)
  Sender: CSL BEHRING
  Company Number: US-BEH-2024168923

PATIENT
  Age: 59 Year
  Sex: Male
  Weight: 174 kg

DRUGS (4)
  1. HIZENTRA [Suspect]
     Active Substance: HUMAN IMMUNOGLOBULIN G
     Indication: Hypergammaglobulinaemia
     Dosage: UNK, QW
     Route: 065
     Dates: start: 20240218
  2. HIZENTRA [Suspect]
     Active Substance: HUMAN IMMUNOGLOBULIN G
     Indication: Immunodeficiency
     Dosage: 8 G, QW
     Route: 058
     Dates: start: 202406
  3. HIZENTRA [Suspect]
     Active Substance: HUMAN IMMUNOGLOBULIN G
     Dosage: 10 G, QW
     Route: 058
     Dates: start: 202406
  4. HIZENTRA [Concomitant]
     Active Substance: HUMAN IMMUNOGLOBULIN G
     Dosage: 20% PFS (10GM TOTAL)
     Route: 065

REACTIONS (4)
  - Hepatic failure [Unknown]
  - Illness [Unknown]
  - Product dose omission issue [Recovering/Resolving]
  - Therapy interrupted [Unknown]
